FAERS Safety Report 9787728 (Version 1)
Quarter: 2013Q4

REPORT INFORMATION
  Report Type: Spontaneous
  Country: GB (occurrence: None)
  Receive Date: 20131226
  Receipt Date: 20131226
  Transmission Date: 20140711
  Serious: Yes (Other)
  Sender: FDA-Public Use
  Company Number: FK201305518

PATIENT
  Age: 55 Year
  Sex: Female
  Weight: 50 kg

DRUGS (1)
  1. PACLITAXEL [Suspect]
     Indication: OVARIAN CANCER

REACTIONS (6)
  - Dyspnoea [None]
  - Palpitations [None]
  - Hyperhidrosis [None]
  - Nausea [None]
  - Vomiting [None]
  - Palmar erythema [None]
